FAERS Safety Report 9468499 (Version 1)
Quarter: 2013Q3

REPORT INFORMATION
  Report Type: Report from Study
  Country: JP (occurrence: JP)
  Receive Date: 20130821
  Receipt Date: 20130821
  Transmission Date: 20140515
  Serious: Yes (Hospitalization)
  Sender: FDA-Public Use
  Company Number: JP-BAYER-2013-100113

PATIENT
  Age: 90 Year
  Sex: Female

DRUGS (4)
  1. GLUCOBAY OD [Suspect]
     Indication: DIABETES MELLITUS
     Dosage: 100 MG, TID
     Route: 048
     Dates: start: 20110128, end: 20111124
  2. NESINA [Concomitant]
     Dosage: DAILY DOSE 25 MG
     Route: 048
     Dates: start: 20110228, end: 20110921
  3. ACTOS [Concomitant]
     Indication: DIABETES MELLITUS
     Dosage: DAILY DOSE 15 MG
     Route: 048
     Dates: start: 20110421, end: 20110623
  4. ACTOS [Concomitant]
     Indication: DIABETES MELLITUS
     Dosage: DAILY DOSE 30 MG
     Route: 048
     Dates: start: 20110624, end: 20110921

REACTIONS (1)
  - Pneumonia [Recovered/Resolved]
